FAERS Safety Report 14100789 (Version 1)
Quarter: 2017Q4

REPORT INFORMATION
  Report Type: Spontaneous
  Country: FR (occurrence: FR)
  Receive Date: 20171018
  Receipt Date: 20171018
  Transmission Date: 20180321
  Serious: Yes (Life-Threatening, Hospitalization)
  Sender: FDA-Public Use
  Company Number: FR-ROCHE-1569991

PATIENT
  Age: 86 Year
  Sex: Female

DRUGS (11)
  1. FUROSEMIDE. [Concomitant]
     Active Substance: FUROSEMIDE
  2. TITANOREINE (FRANCE) [Concomitant]
  3. AMOXICILLINE [Concomitant]
     Active Substance: AMOXICILLIN
     Route: 048
     Dates: start: 20150409
  4. AMOXICILLINE [Concomitant]
     Active Substance: AMOXICILLIN
     Indication: LUNG INFECTION
     Route: 065
     Dates: start: 20141103
  5. MEDIATENSYL [Concomitant]
     Active Substance: URAPIDIL
  6. MOPRAL [Concomitant]
     Active Substance: OMEPRAZOLE SODIUM
  7. ROCEPHINE [Suspect]
     Active Substance: CEFTRIAXONE SODIUM
     Indication: BRONCHOPNEUMOPATHY
     Route: 030
     Dates: start: 20141108, end: 20141108
  8. EFFERALGAN [Concomitant]
     Active Substance: ACETAMINOPHEN
  9. NAABAK [Concomitant]
  10. SERETIDE [Concomitant]
     Active Substance: FLUTICASONE PROPIONATE\SALMETEROL XINAFOATE
  11. EDUCTYL [Concomitant]
     Active Substance: POTASSIUM BITARTRATE\SODIUM BICARBONATE

REACTIONS (3)
  - Anaphylactic shock [Recovered/Resolved]
  - Documented hypersensitivity to administered product [Unknown]
  - Type I hypersensitivity [Recovered/Resolved]

NARRATIVE: CASE EVENT DATE: 20141108
